FAERS Safety Report 4998012-2 (Version None)
Quarter: 2006Q2

REPORT INFORMATION
  Report Type: 
  Country: None (occurrence: None)
  Receive Date: 20060508
  Receipt Date: 20060425
  Transmission Date: 20061013
  Serious: Yes (Hospitalization)
  Sender: FDA-Public Use
  Company Number: US-2006-010006

PATIENT
  Age: 80 Year
  Sex: Male

DRUGS (5)
  1. LEUKINE [Suspect]
     Indication: PROSTATE CANCER
     Dosage: 250MCG/M2 DAY 14-28 EACH CYCLE, SUBCUTANEOUS
     Route: 058
     Dates: start: 20060228, end: 20060401
  2. KETOCONAZOLE [Suspect]
     Indication: PROSTATE CANCER
     Dosage: 400 MG, ORAL
     Route: 048
     Dates: start: 20060228, end: 20060401
  3. ALCOHOL (ETHANOL) [Suspect]
     Dosage: ORAL
     Route: 048
     Dates: start: 20060413, end: 20060413
  4. HYDROCORTISONE [Suspect]
     Indication: PROSTATE CANCER
     Dosage: 20MG AM/10MG PM, ORAL
     Route: 048
     Dates: start: 20060228, end: 20060401
  5. ATENOLOL [Concomitant]

REACTIONS (3)
  - ATRIAL FIBRILLATION [None]
  - MALAISE [None]
  - PALPITATIONS [None]
